FAERS Safety Report 15869095 (Version 1)
Quarter: 2019Q1

REPORT INFORMATION
  Report Type: Spontaneous
  Country: US (occurrence: US)
  Receive Date: 20190125
  Receipt Date: 20190125
  Transmission Date: 20190417
  Serious: Yes (Other)
  Sender: FDA-Public Use
  Company Number: None

PATIENT
  Age: 28 Year
  Sex: Female
  Weight: 81.65 kg

DRUGS (1)
  1. NEXPLANON [Suspect]
     Active Substance: ETONOGESTREL

REACTIONS (8)
  - Urinary tract infection [None]
  - Nausea [None]
  - Dizziness [None]
  - Complication associated with device [None]
  - Blood urine present [None]
  - Renal pain [None]
  - Bladder pain [None]
  - Vomiting [None]

NARRATIVE: CASE EVENT DATE: 20170815
